FAERS Safety Report 13820878 (Version 1)
Quarter: 2017Q3

REPORT INFORMATION
  Report Type: Spontaneous
  Country: US (occurrence: US)
  Receive Date: 20170801
  Receipt Date: 20170801
  Transmission Date: 20171127
  Serious: No
  Sender: FDA-Public Use
  Company Number: US-TEVA-784670USA

PATIENT
  Sex: Male

DRUGS (1)
  1. LORAZEPAM. [Suspect]
     Active Substance: LORAZEPAM
     Route: 065

REACTIONS (6)
  - Paraesthesia [Unknown]
  - Thermal burn [Unknown]
  - Sleep disorder [Unknown]
  - Drug ineffective [Unknown]
  - Adverse event [Unknown]
  - Malaise [Unknown]
